FAERS Safety Report 14066297 (Version 1)
Quarter: 2017Q4

REPORT INFORMATION
  Report Type: Report from Study
  Country: CA (occurrence: CA)
  Receive Date: 20171009
  Receipt Date: 20171009
  Transmission Date: 20180321
  Serious: Yes (Other)
  Sender: FDA-Public Use
  Company Number: CA-JNJFOC-20170705298

PATIENT
  Age: 44 Year
  Sex: Male
  Weight: 54 kg

DRUGS (2)
  1. PURINETHOL [Concomitant]
     Active Substance: MERCAPTOPURINE
     Indication: CROHN^S DISEASE
     Route: 048
  2. REMICADE [Suspect]
     Active Substance: INFLIXIMAB
     Indication: CROHN^S DISEASE
     Route: 042
     Dates: start: 20131101, end: 20171004

REACTIONS (6)
  - Lung infection [Recovering/Resolving]
  - Lupus-like syndrome [Unknown]
  - Pleurisy [Unknown]
  - Loss of consciousness [Unknown]
  - Pneumonia [Not Recovered/Not Resolved]
  - Dehydration [Recovering/Resolving]

NARRATIVE: CASE EVENT DATE: 2017
